FAERS Safety Report 6139799-5 (Version None)
Quarter: 2009Q2

REPORT INFORMATION
  Report Type: 
  Country: None (occurrence: None)
  Receive Date: 20090401
  Receipt Date: 20090325
  Transmission Date: 20091009
  Serious: Yes (Other)
  Sender: FDA-Public Use
  Company Number: B0562682A

PATIENT
  Sex: Male
  Weight: 52 kg

DRUGS (1)
  1. ARIXTRA [Suspect]
     Indication: THROMBOSIS PROPHYLAXIS
     Dosage: 1.5MG PER DAY
     Route: 058
     Dates: start: 20090213, end: 20090216

REACTIONS (5)
  - ANAEMIA [None]
  - BLOOD CREATININE DECREASED [None]
  - HAEMOGLOBIN DECREASED [None]
  - PLATELET COUNT DECREASED [None]
  - POST PROCEDURAL HAEMORRHAGE [None]
